FAERS Safety Report 5343610-X (Version None)
Quarter: 2007Q2

REPORT INFORMATION
  Report Type: 
  Country: None (occurrence: None)
  Receive Date: 20070531
  Receipt Date: 20070515
  Transmission Date: 20071010
  Serious: Yes (Life-Threatening, Disabling)
  Sender: FDA-Public Use
  Company Number: 8023758

PATIENT
  Age: 77 Year
  Sex: Female
  Weight: 65 kg

DRUGS (4)
  1. KEPPRA [Suspect]
     Indication: EPILEPSY
     Dosage: 750 MG/D; PO
     Route: 048
     Dates: start: 20070201, end: 20070401
  2. KEPPRA [Suspect]
     Indication: EPILEPSY
     Dosage: NAS
     Route: 045
     Dates: start: 20070401, end: 20070401
  3. MYSOLINE, 0.5 DF 1/D [Concomitant]
  4. MOPRAL /00661201/, 10MG 1/D [Concomitant]

REACTIONS (18)
  - CATATONIA [None]
  - CERVICAL VERTEBRAL FRACTURE [None]
  - CONTUSION [None]
  - DEPRESSION [None]
  - FACIAL BONES FRACTURE [None]
  - HAEMOTHORAX [None]
  - HEART INJURY [None]
  - HERPES VIRUS INFECTION [None]
  - LIVER INJURY [None]
  - LUMBAR VERTEBRAL FRACTURE [None]
  - LUNG DISORDER [None]
  - LUNG INJURY [None]
  - MENTAL DISORDER [None]
  - MULTIPLE INJURIES [None]
  - PULMONARY OEDEMA [None]
  - RESPIRATORY FAILURE [None]
  - STAPHYLOCOCCAL INFECTION [None]
  - SUICIDE ATTEMPT [None]
